FAERS Safety Report 25651154 (Version 1)
Quarter: 2025Q3

REPORT INFORMATION
  Report Type: Report from Study
  Country: US (occurrence: US)
  Receive Date: 20250806
  Receipt Date: 20250806
  Transmission Date: 20251020
  Serious: Yes (Hospitalization, Other)
  Sender: PFIZER
  Company Number: US-PFIZER INC-202500059374

PATIENT
  Age: 88 Year
  Sex: Female

DRUGS (8)
  1. IBRANCE [Suspect]
     Active Substance: PALBOCICLIB
     Indication: Neoplasm malignant
     Route: 048
  2. IBRANCE [Suspect]
     Active Substance: PALBOCICLIB
  3. AMLODIPINE BESYLATE;BENAZEPRIL [Concomitant]
  4. CAL-CITRATE PLUS VITAMIN D [Concomitant]
  5. CLARITIN [Concomitant]
     Active Substance: LORATADINE
  6. EXEMESTANE [Concomitant]
     Active Substance: EXEMESTANE
  7. VENLAFAXINE [Concomitant]
     Active Substance: VENLAFAXINE HYDROCHLORIDE
  8. VITAMIN D NOS [Concomitant]
     Active Substance: CHOLECALCIFEROL\ERGOCALCIFEROL

REACTIONS (5)
  - Septic shock [Recovering/Resolving]
  - Bacteraemia [Recovering/Resolving]
  - White blood cell count decreased [Recovering/Resolving]
  - Heart rate increased [Recovering/Resolving]
  - Increased tendency to bruise [Recovered/Resolved]

NARRATIVE: CASE EVENT DATE: 20250726
